FAERS Safety Report 16126036 (Version 1)
Quarter: 2019Q1

REPORT INFORMATION
  Report Type: Spontaneous
  Country: US (occurrence: US)
  Receive Date: 20190328
  Receipt Date: 20190328
  Transmission Date: 20190418
  Serious: No
  Sender: FDA-Public Use
  Company Number: US-TEVA-2019-US-1022156

PATIENT
  Sex: Female
  Weight: 61.29 kg

DRUGS (1)
  1. TRIAMCINOLONE CREAM USP 0.1% [Suspect]
     Active Substance: TRIAMCINOLONE

REACTIONS (2)
  - Pruritus [Not Recovered/Not Resolved]
  - Drug ineffective [Unknown]
